FAERS Safety Report 12619047 (Version 5)
Quarter: 2016Q3

REPORT INFORMATION
  Report Type: Report from Study
  Country: DE (occurrence: DE)
  Receive Date: 20160803
  Receipt Date: 20160913
  Transmission Date: 20161109
  Serious: Yes (Hospitalization, Other)
  Sender: FDA-Public Use
  Company Number: PHHY2016DE104646

PATIENT
  Sex: Male

DRUGS (18)
  1. TASIGNA [Suspect]
     Active Substance: NILOTINIB
     Indication: CHRONIC MYELOID LEUKAEMIA
     Dosage: 600 MG, QD
     Route: 065
     Dates: start: 20150713
  2. FUROSEMIDE. [Concomitant]
     Active Substance: FUROSEMIDE
     Indication: HYPERTENSION
     Dosage: 40 MG, QD
     Route: 065
  3. KALITRANS [Concomitant]
     Active Substance: POTASSIUM CHLORIDE
     Dosage: 05 G, QD
     Route: 065
     Dates: start: 20160423
  4. AMLODIPINE [Concomitant]
     Active Substance: AMLODIPINE BESYLATE
     Indication: HYPERTENSION
     Dosage: 10 MG, QD
     Route: 065
     Dates: start: 20160418, end: 20160421
  5. KALIUMCHLORIDE [Concomitant]
     Dosage: 40 (MVAL)
     Route: 065
     Dates: start: 20160422, end: 20160422
  6. ZYLORIC [Concomitant]
     Active Substance: ALLOPURINOL
     Indication: BLOOD URIC ACID ABNORMAL
     Dosage: 300 MG, QD
     Route: 065
     Dates: start: 20160421, end: 20160421
  7. NOVALGIN [Concomitant]
     Active Substance: METAMIZOLE SODIUM
     Indication: PAIN
     Dosage: 3 MG, QD
     Route: 065
     Dates: start: 20160415, end: 20160418
  8. NITRO [Concomitant]
     Active Substance: NITROGLYCERIN
     Indication: HYPERTENSION
     Dosage: 0.8 MG, QD
     Route: 065
     Dates: start: 20160415, end: 20160415
  9. PARACETAMOL [Concomitant]
     Active Substance: ACETAMINOPHEN
     Indication: PAIN
     Dosage: 1 G, QD
     Route: 065
     Dates: start: 20160415, end: 20160415
  10. KALITRANS [Concomitant]
     Active Substance: POTASSIUM CHLORIDE
     Indication: HYPOKALAEMIA
     Dosage: 7.5 G, QD
     Route: 065
     Dates: start: 20160421, end: 20160422
  11. KALIUMCHLORIDE [Concomitant]
     Indication: HYPOKALAEMIA
     Dosage: 40 (MVAL)
     Route: 065
     Dates: start: 20160416, end: 20160416
  12. HYDROCHLOROTHIAZIDE. [Concomitant]
     Active Substance: HYDROCHLOROTHIAZIDE
     Indication: HYPERTENSION
     Dosage: 12.5 MG, QD
     Route: 065
     Dates: start: 20150630
  13. CARBIMAZOLE [Concomitant]
     Active Substance: CARBIMAZOLE
     Indication: HYPERTHYROIDISM
     Dosage: 10 MG, QD
     Route: 065
     Dates: start: 20150630
  14. MCP//METOCLOPRAMIDE HYDROCHLORIDE [Concomitant]
     Indication: NAUSEA
     Dosage: 30 MG, QD
     Route: 065
     Dates: start: 20160421, end: 20160422
  15. KALIUMCHLORIDE [Concomitant]
     Dosage: 60 (MVAL)
     Route: 065
     Dates: start: 20160418, end: 20160418
  16. ALLOPURINOL. [Concomitant]
     Active Substance: ALLOPURINOL
     Indication: HYPERURICAEMIA
     Dosage: 300 MG, QD
     Route: 065
     Dates: start: 20150626
  17. RAMIPRIL. [Concomitant]
     Active Substance: RAMIPRIL
     Indication: HYPERTENSION
     Dosage: 10 MG, QD
     Route: 065
     Dates: start: 20150626
  18. DIPIDOLOR [Concomitant]
     Active Substance: PIRITRAMIDE
     Indication: PAIN
     Dosage: 7.5 MG, QD
     Route: 065
     Dates: start: 20160414, end: 20160414

REACTIONS (12)
  - Fatigue [Unknown]
  - Cholelithiasis [Recovered/Resolved]
  - Hypokalaemia [Unknown]
  - Abdominal pain upper [Unknown]
  - Nausea [Unknown]
  - Pancreatitis acute [Recovered/Resolved]
  - Chest discomfort [Unknown]
  - Acute coronary syndrome [Not Recovered/Not Resolved]
  - Angina pectoris [Unknown]
  - Atrial fibrillation [Not Recovered/Not Resolved]
  - Cardiac failure chronic [Unknown]
  - Vomiting [Unknown]

NARRATIVE: CASE EVENT DATE: 20160414
